FAERS Safety Report 6704747-3 (Version None)
Quarter: 2010Q2

REPORT INFORMATION
  Report Type: 
  Country: None (occurrence: None)
  Receive Date: 20100430
  Receipt Date: 20090330
  Transmission Date: 20101027
  Serious: No
  Sender: FDA-Public Use
  Company Number: US-BAUSCH-2009BL001449

PATIENT
  Age: 70 Year
  Sex: Male

DRUGS (2)
  1. ALREX [Suspect]
     Indication: EYE PRURITUS
     Route: 047
     Dates: start: 20090311, end: 20090312
  2. RESTASIS [Concomitant]
     Route: 047

REACTIONS (1)
  - DRUG HYPERSENSITIVITY [None]
